FAERS Safety Report 19860421 (Version 1)
Quarter: 2021Q3

REPORT INFORMATION
  Report Type: Spontaneous
  Country: US (occurrence: US)
  Receive Date: 20210917
  Receipt Date: 20210917
  Transmission Date: 20211014
  Serious: Yes (Death)
  Sender: FDA-Public Use
  Company Number: None

PATIENT
  Age: 59 Year
  Sex: Female
  Weight: 96.5 kg

DRUGS (4)
  1. LABETALOL [Concomitant]
     Active Substance: LABETALOL\LABETALOL HYDROCHLORIDE
  2. ACTIVASE [Suspect]
     Active Substance: ALTEPLASE
     Indication: CEREBROVASCULAR ACCIDENT
     Dosage: ?          OTHER DOSE:8.6/77.4 MG/MG?
     Route: 042
     Dates: start: 20210811, end: 20210811
  3. LABETALOL 20MG/4ML [Suspect]
     Active Substance: LABETALOL HYDROCHLORIDE
     Indication: BLOOD PRESSURE INCREASED
     Route: 042
     Dates: start: 20210811
  4. LISINOPRIL. [Concomitant]
     Active Substance: LISINOPRIL

REACTIONS (7)
  - Unresponsive to stimuli [None]
  - Angioedema [None]
  - Generalised oedema [None]
  - Dysarthria [None]
  - Mental status changes [None]
  - Asthenia [None]
  - Facial paralysis [None]

NARRATIVE: CASE EVENT DATE: 20210811
